FAERS Safety Report 13668638 (Version 1)
Quarter: 2017Q2

REPORT INFORMATION
  Report Type: Spontaneous
  Country: US (occurrence: US)
  Receive Date: 20170620
  Receipt Date: 20170620
  Transmission Date: 20170830
  Serious: Yes (Other)
  Sender: FDA-Public Use
  Company Number: US-TEVA-778844USA

PATIENT
  Age: 18 Year
  Sex: Female

DRUGS (2)
  1. MEDROXYPROGESTERONE [Suspect]
     Active Substance: MEDROXYPROGESTERONE
     Indication: CONTRACEPTION
     Route: 065
  2. TECFIDERA [Interacting]
     Active Substance: DIMETHYL FUMARATE
     Indication: MULTIPLE SCLEROSIS
     Route: 065

REACTIONS (5)
  - Drug interaction [Recovered/Resolved]
  - Platelet dysfunction [Recovered/Resolved]
  - Menorrhagia [Recovering/Resolving]
  - Anaemia [Unknown]
  - Hypovolaemia [Unknown]
